FAERS Safety Report 6700397-3 (Version None)
Quarter: 2010Q2

REPORT INFORMATION
  Report Type: 
  Country: None (occurrence: None)
  Receive Date: 20100428
  Receipt Date: 20100422
  Transmission Date: 20101027
  Serious: Yes (Other)
  Sender: FDA-Public Use
  Company Number: NL-ROCHE-698617

PATIENT
  Sex: Female

DRUGS (1)
  1. RIVOTRIL [Suspect]
     Indication: SPINAL DISORDER
     Dosage: FREQUENCY NOT REPORTED
     Route: 048

REACTIONS (1)
  - DYSKINESIA [None]
